FAERS Safety Report 10159581 (Version 1)
Quarter: 2014Q2

REPORT INFORMATION
  Report Type: Report from Study
  Country: US (occurrence: US)
  Receive Date: 20140508
  Receipt Date: 20140508
  Transmission Date: 20141212
  Serious: Yes (Hospitalization)
  Sender: FDA-Public Use
  Company Number: US-JNJFOC-20140501956

PATIENT
  Age: 56 Year
  Sex: Female
  Weight: 71.22 kg

DRUGS (15)
  1. REMICADE [Suspect]
     Indication: RHEUMATOID ARTHRITIS
     Route: 042
     Dates: start: 201402
  2. METHOTREXATE [Suspect]
     Indication: RHEUMATOID ARTHRITIS
     Dosage: 10MG/TABLET/2.5MG/8 TABLETS ONCE A WEEK/ORAL
     Route: 048
     Dates: start: 2012
  3. PREDNISONE [Suspect]
     Indication: RHEUMATOID ARTHRITIS
     Route: 048
  4. ZYRTEC [Concomitant]
     Indication: MULTIPLE ALLERGIES
     Route: 065
  5. NOVOLIN 70/30 [Concomitant]
     Indication: DIABETES MELLITUS
     Dosage: 20 UNITS
     Route: 058
  6. LEXAPRO [Concomitant]
     Indication: DEPRESSION
     Route: 048
  7. ATENOLOL [Concomitant]
     Indication: HEART RATE DECREASED
     Route: 048
  8. BABY ASPIRIN [Concomitant]
     Indication: CARDIAC DISORDER
     Route: 048
  9. ESTRACE [Concomitant]
     Indication: MENOPAUSE
     Route: 061
     Dates: start: 201404
  10. TRAMADOL [Concomitant]
     Indication: PAIN
     Route: 048
  11. ZOLPIDEM [Concomitant]
     Indication: SLEEP DISORDER THERAPY
     Route: 048
  12. XANAX [Concomitant]
     Indication: SLEEP DISORDER THERAPY
     Route: 048
  13. MONTELUKAST [Concomitant]
     Indication: MULTIPLE ALLERGIES
     Route: 048
  14. FOLIC ACID [Concomitant]
     Route: 048
  15. ZETIA [Concomitant]
     Indication: BLOOD CHOLESTEROL
     Route: 048

REACTIONS (4)
  - Urinary retention [Recovered/Resolved]
  - Pneumonia [Recovering/Resolving]
  - Investigation [Unknown]
  - Drug ineffective [Not Recovered/Not Resolved]
